FAERS Safety Report 21315894 (Version 1)
Quarter: 2022Q3

REPORT INFORMATION
  Report Type: Report from Study
  Country: IN (occurrence: IN)
  Receive Date: 20220910
  Receipt Date: 20220910
  Transmission Date: 20221026
  Serious: Yes (Hospitalization, Other)
  Sender: FDA-Public Use
  Company Number: IN-BRISTOL-MYERS SQUIBB COMPANY-2022-057804

PATIENT
  Age: 69 Year
  Sex: Female
  Weight: 70 kg

DRUGS (4)
  1. NIVOLUMAB [Suspect]
     Active Substance: NIVOLUMAB
     Indication: Squamous cell carcinoma of head and neck
     Dosage: FREQUENCY- 2 WEEKLY
     Route: 042
     Dates: start: 20190524
  2. NIVOLUMAB [Suspect]
     Active Substance: NIVOLUMAB
     Indication: Nasal sinus cancer
  3. CETUXIMAB [Suspect]
     Active Substance: CETUXIMAB
     Indication: Nasal sinus cancer
     Route: 065
  4. FLUOROURACIL [Concomitant]
     Active Substance: FLUOROURACIL
     Indication: Nasal sinus cancer

REACTIONS (11)
  - Malignant neoplasm progression [Unknown]
  - Malaise [Unknown]
  - Oral infection [Unknown]
  - Oral papilloma [Unknown]
  - Aortic valve calcification [Unknown]
  - Oroantral fistula [Unknown]
  - Cardiomegaly [Unknown]
  - Pericardial effusion [Unknown]
  - Hiatus hernia [Unknown]
  - Bladder dilatation [Unknown]
  - Osteopenia [Unknown]

NARRATIVE: CASE EVENT DATE: 20191109
